FAERS Safety Report 17137858 (Version 1)
Quarter: 2019Q4

REPORT INFORMATION
  Report Type: Spontaneous
  Country: FR (occurrence: FR)
  Receive Date: 20191211
  Receipt Date: 20191211
  Transmission Date: 20200122
  Serious: Yes (Other)
  Sender: FDA-Public Use
  Company Number: FR-AUROBINDO-AUR-APL-2019-104393

PATIENT
  Age: 2 Year
  Sex: Female

DRUGS (1)
  1. AMOXICILLIN. [Suspect]
     Active Substance: AMOXICILLIN
     Indication: CHEILITIS
     Dosage: UNK
     Route: 065

REACTIONS (4)
  - Dermatitis bullous [Unknown]
  - Feeding disorder [Unknown]
  - Kaposi^s varicelliform eruption [Unknown]
  - Purpura [Unknown]
